FAERS Safety Report 8900984 (Version 1)
Quarter: 2012Q4

REPORT INFORMATION
  Report Type: 
  Country: BR (occurrence: BR)
  Receive Date: 20121109
  Receipt Date: 20121109
  Transmission Date: 20130627
  Serious: Yes (Disabling, Other)
  Sender: FDA-Public Use
  Company Number: BR-ELI_LILLY_AND_COMPANY-BR201210009837

PATIENT
  Sex: Female
  Weight: 65 kg

DRUGS (4)
  1. ALIMTA [Suspect]
     Indication: LUNG NEOPLASM MALIGNANT
     Dosage: UNK, unknown
     Route: 042
     Dates: start: 201208
  2. ENDOFOLIN [Concomitant]
     Dosage: UNK, unknown
     Route: 065
  3. DAFORIN [Concomitant]
     Indication: EMOTIONAL DISORDER
     Dosage: 20 mg, qd
     Route: 065
  4. ROSUVASTATINA                      /01588601/ [Concomitant]
     Indication: BLOOD CHOLESTEROL
     Dosage: 20 mg, qd
     Route: 065

REACTIONS (1)
  - Visual acuity reduced [Not Recovered/Not Resolved]
